FAERS Safety Report 11109340 (Version 1)
Quarter: 2015Q2

REPORT INFORMATION
  Report Type: Spontaneous
  Country: US (occurrence: None)
  Receive Date: 20150511
  Receipt Date: 20150511
  Transmission Date: 20150821
  Serious: No
  Sender: FDA-Public Use
  Company Number: None

PATIENT
  Age: 70 Year
  Sex: Female
  Weight: 97.52 kg

DRUGS (17)
  1. TRAZODON [Concomitant]
     Active Substance: TRAZODONE HYDROCHLORIDE
  2. COENZYME Q10 [Concomitant]
     Active Substance: UBIDECARENONE
  3. PROBOTIC [Concomitant]
     Active Substance: PROBIOTICS NOS
  4. MIRALAX [Concomitant]
     Active Substance: POLYETHYLENE GLYCOL 3350
  5. SYNTHROID GENERIC [Concomitant]
     Active Substance: LEVOTHYROXINE SODIUM
  6. MULTIVITAMIN [Concomitant]
     Active Substance: VITAMINS
  7. ZERTAC [Concomitant]
  8. CALCIUM [Concomitant]
     Active Substance: CALCIUM
  9. CRESTOR [Suspect]
     Active Substance: ROSUVASTATIN CALCIUM
     Indication: BLOOD CHOLESTEROL INCREASED
  10. VITAMIN D [Concomitant]
     Active Substance: CHOLECALCIFEROL
  11. SERTRALINE [Concomitant]
     Active Substance: SERTRALINE HYDROCHLORIDE
  12. ALBUTERAL INHALER [Concomitant]
  13. IRON [Concomitant]
     Active Substance: IRON
  14. VITAMIN C [Concomitant]
     Active Substance: ASCORBIC ACID
  15. NEXIUM [Concomitant]
     Active Substance: ESOMEPRAZOLE MAGNESIUM
  16. ASTEOPRO SPRAY [Concomitant]
  17. VITAMIN B [Concomitant]
     Active Substance: VITAMIN B

REACTIONS (6)
  - Muscle injury [None]
  - Exercise tolerance decreased [None]
  - Pain in extremity [None]
  - Pain [None]
  - Back disorder [None]
  - Feeling abnormal [None]
